FAERS Safety Report 8921754 (Version 1)
Quarter: 2012Q4

REPORT INFORMATION
  Report Type: 
  Country: US (occurrence: US)
  Receive Date: 20121121
  Receipt Date: 20121121
  Transmission Date: 20130627
  Serious: Yes (Other)
  Sender: FDA-Public Use
  Company Number: US-ABBOTT-12P-163-1008639-00

PATIENT
  Age: 52 Year
  Sex: Female
  Weight: 75.36 kg

DRUGS (6)
  1. LUPRON DEPOT [Suspect]
     Indication: UTERINE LEIOMYOMA
     Route: 030
     Dates: start: 20121030
  2. EFFEXOR [Concomitant]
     Indication: AFFECTIVE DISORDER
  3. DEPAKOTE [Concomitant]
     Indication: AFFECTIVE DISORDER
  4. VALCYCLOVIR [Concomitant]
  5. TRAMADOL [Concomitant]
     Indication: SPINAL PAIN
  6. TRAMADOL [Concomitant]
     Indication: INTERVERTEBRAL DISC PROTRUSION

REACTIONS (4)
  - Dehydration [Recovered/Resolved]
  - Headache [Recovered/Resolved]
  - Migraine [Recovered/Resolved]
  - Oropharyngeal pain [Recovering/Resolving]
